FAERS Safety Report 4397094-9 (Version None)
Quarter: 2004Q3

REPORT INFORMATION
  Report Type: 
  Country: None (occurrence: None)
  Receive Date: 20040708
  Receipt Date: 20040629
  Transmission Date: 20050211
  Serious: Yes (Death)
  Sender: FDA-Public Use
  Company Number: 2003AP00065

PATIENT
  Age: 62 Year
  Sex: Male

DRUGS (13)
  1. IRESSA [Suspect]
     Indication: LUNG SQUAMOUS CELL CARCINOMA STAGE UNSPECIFIED
     Dosage: 250 MG DAILY PO
     Route: 048
     Dates: start: 20021009, end: 20021216
  2. IRESSA [Suspect]
     Indication: NON-SMALL CELL LUNG CANCER
     Dosage: 250 MG DAILY PO
     Route: 048
     Dates: start: 20021009, end: 20021216
  3. PURSENNID [Concomitant]
  4. TRYPTANOL [Concomitant]
  5. RIVOTRIL [Concomitant]
  6. DEPAS [Concomitant]
  7. CYANOCOBALAMIN [Concomitant]
  8. AMOBAN [Concomitant]
  9. CARBOPLATIN [Concomitant]
  10. DOCETAXEL [Concomitant]
  11. ROHYPNOL [Concomitant]
  12. BIOFERMIN [Concomitant]
  13. GASTER [Concomitant]

REACTIONS (6)
  - BRONCHIECTASIS [None]
  - DISEASE PROGRESSION [None]
  - INTERSTITIAL LUNG DISEASE [None]
  - LUNG SQUAMOUS CELL CARCINOMA RECURRENT [None]
  - PERFORMANCE STATUS DECREASED [None]
  - RESPIRATORY FAILURE [None]
